FAERS Safety Report 8301815 (Version 4)
Quarter: 2014Q3

REPORT INFORMATION
  Report Type: Report from Study
  Country: US (occurrence: US)
  Receive Date: 20111129
  Receipt Date: 20140724
  Transmission Date: 20150326
  Serious: Yes (Other)
  Sender: FDA-Public Use
  Company Number: PHHY2011US64638

PATIENT
  Age: 19 Year
  Sex: Female

DRUGS (5)
  1. MULTIVITAMINS [Concomitant]
     Active Substance: VITAMINS
     Dosage: UNK UKN, UNK
     Route: 065
     Dates: start: 2011
  2. AFINITOR [Suspect]
     Active Substance: EVEROLIMUS
     Dosage: 7.5 MG, DAILY
     Route: 048
     Dates: start: 20140401
  3. AFINITOR [Suspect]
     Active Substance: EVEROLIMUS
     Indication: BRAIN NEOPLASM BENIGN
     Dosage: 5 MG, QD
     Route: 048
     Dates: start: 20110118
  4. AFINITOR [Suspect]
     Active Substance: EVEROLIMUS
     Indication: ASTROCYTOMA, LOW GRADE
     Dosage: 10 MG, UNK
  5. TEGRETOL [Concomitant]
     Active Substance: CARBAMAZEPINE
     Dosage: UNK UKN, UNK
     Route: 065
     Dates: start: 2011

REACTIONS (4)
  - Endometriosis [Unknown]
  - Dysmenorrhoea [Unknown]
  - Menstruation irregular [Unknown]
  - Drug level increased [Unknown]

NARRATIVE: CASE EVENT DATE: 20110501
